FAERS Safety Report 24366101 (Version 2)
Quarter: 2024Q3

REPORT INFORMATION
  Report Type: Spontaneous
  Country: US (occurrence: US)
  Receive Date: 20240926
  Receipt Date: 20240930
  Transmission Date: 20241016
  Serious: No
  Sender: PFIZER
  Company Number: US-PFIZER INC-202400264050

PATIENT
  Age: 75 Year
  Sex: Female
  Weight: 79.365 kg

DRUGS (1)
  1. ESTRADIOL CYPIONATE [Suspect]
     Active Substance: ESTRADIOL CYPIONATE
     Dosage: UNK

REACTIONS (1)
  - Drug ineffective [Unknown]
